FAERS Safety Report 5116169-X (Version None)
Quarter: 2006Q3

REPORT INFORMATION
  Report Type: 
  Country: None (occurrence: None)
  Receive Date: 20060927
  Receipt Date: 20060712
  Transmission Date: 20061208
  Serious: No
  Sender: FDA-Public Use
  Company Number: US-BRISTOL-MYERS SQUIBB COMPANY-13440516

PATIENT
  Age: 72 Year
  Sex: Male

DRUGS (1)
  1. DEFINITY [Suspect]
     Dosage: GIVEN ADDITIONAL 1ML FIVE MINUTES AFTER FIRST DOSE.
     Dates: start: 20060712, end: 20060712

REACTIONS (1)
  - ABDOMINAL PAIN [None]
